FAERS Safety Report 8540051 (Version 5)
Quarter: 2012Q4

REPORT INFORMATION
  Report Type: 
  Country: US (occurrence: US)
  Receive Date: 20120502
  Receipt Date: 20121207
  Transmission Date: 20130627
  Serious: Yes (Life-Threatening, Hospitalization, Other)
  Sender: FDA-Public Use
  Company Number: US-ASTRAZENECA-2012SE27519

PATIENT
  Age: 42 Year
  Sex: Female

DRUGS (3)
  1. RHINOCORT AQUA [Suspect]
     Route: 045
  2. NEXIUM [Suspect]
     Route: 048
  3. ALPRAZOLAM [Concomitant]

REACTIONS (9)
  - Haemorrhage [Unknown]
  - Ulcer [Unknown]
  - Circulatory collapse [Unknown]
  - Gastrooesophageal reflux disease [Unknown]
  - Staphylococcal infection [Unknown]
  - Chest pain [Unknown]
  - Hypotension [Unknown]
  - Nasopharyngitis [Unknown]
  - Drug dose omission [Unknown]
